FAERS Safety Report 6133342-2 (Version None)
Quarter: 2009Q1

REPORT INFORMATION
  Report Type: 
  Country: None (occurrence: None)
  Receive Date: 20090326
  Receipt Date: 20090318
  Transmission Date: 20090719
  Serious: Yes (Hospitalization)
  Sender: FDA-Public Use
  Company Number: US-GILEAD-2009-0020938

PATIENT
  Sex: Female
  Weight: 59.928 kg

DRUGS (16)
  1. LETAIRIS [Suspect]
     Indication: PULMONARY ARTERIAL HYPERTENSION
     Route: 048
     Dates: start: 20081024
  2. VENTAVIS [Concomitant]
  3. PRILOSEC [Concomitant]
  4. TYLENOL W/ CODEINE #3 [Concomitant]
  5. ALBUTEROL [Concomitant]
  6. COUMADIN [Concomitant]
  7. REVATIO [Concomitant]
  8. LIPITOR [Concomitant]
  9. TRICOR [Concomitant]
  10. CLARITIN-D [Concomitant]
  11. METFORMIN [Concomitant]
  12. LISINOPRIL [Concomitant]
  13. ALENDRONATE SODIUM [Concomitant]
  14. VALIUM [Concomitant]
  15. LEVOTHYROXINE SODIUM [Concomitant]
  16. ARTHROTEC [Concomitant]

REACTIONS (2)
  - HEADACHE [None]
  - VOMITING [None]
